FAERS Safety Report 8080618-8 (Version None)
Quarter: 2012Q1

REPORT INFORMATION
  Report Type: 
  Country: None (occurrence: None)
  Receive Date: 20120130
  Receipt Date: 20120123
  Transmission Date: 20120608
  Serious: Yes (Other)
  Sender: FDA-Public Use
  Company Number: FR-ROXANE LABORATORIES, INC.-2012-RO-00521RO

PATIENT
  Age: 79 Year
  Sex: Male

DRUGS (2)
  1. FOLIC ACID [Suspect]
     Dosage: 10 MG
  2. METHOTREXATE [Suspect]
     Indication: ECZEMA

REACTIONS (1)
  - LYMPHOPENIA [None]
